FAERS Safety Report 8032312-7 (Version None)
Quarter: 2012Q1

REPORT INFORMATION
  Report Type: 
  Country: None (occurrence: None)
  Receive Date: 20120110
  Receipt Date: 20120102
  Transmission Date: 20120608
  Serious: Yes (Hospitalization)
  Sender: FDA-Public Use
  Company Number: FR-BRISTOL-MYERS SQUIBB COMPANY-16328932

PATIENT
  Age: 62 Year
  Sex: Male

DRUGS (3)
  1. POLYETHYLENE GLYCOL [Suspect]
     Indication: CONSTIPATION
     Dosage: MACROGOL 4000
     Route: 048
     Dates: start: 20111114
  2. INNOHEP [Suspect]
     Indication: PULMONARY EMBOLISM
     Dosage: INNOHEP 18000 IU ANTI-XA/0.9ML SOLUTION FOR INJECTION IN PREFILLED SYRINGE
     Route: 058
     Dates: start: 20111114, end: 20111116
  3. IRBESARTAN [Suspect]
     Indication: HYPERTENSION
     Route: 048
     Dates: start: 20111114, end: 20111116

REACTIONS (2)
  - ERYTHEMA [None]
  - SKIN EXFOLIATION [None]
